FAERS Safety Report 25986538 (Version 4)
Quarter: 2025Q4

REPORT INFORMATION
  Report Type: Spontaneous
  Country: US (occurrence: US)
  Receive Date: 20251031
  Receipt Date: 20251225
  Transmission Date: 20260117
  Serious: Yes (Other)
  Sender: ROCHE
  Company Number: US-ROCHE-10000420882

PATIENT
  Age: 80 Year
  Sex: Female

DRUGS (40)
  1. VABYSMO [Suspect]
     Active Substance: FARICIMAB-SVOA
     Indication: Neovascular age-related macular degeneration
     Dates: start: 20250625, end: 20251010
  2. VABYSMO [Suspect]
     Active Substance: FARICIMAB-SVOA
     Indication: Choroidal neovascularisation
     Dates: start: 20250717
  3. VABYSMO [Suspect]
     Active Substance: FARICIMAB-SVOA
     Dates: start: 20250814
  4. VABYSMO [Suspect]
     Active Substance: FARICIMAB-SVOA
     Dates: start: 20251010
  5. AVASTIN [Suspect]
     Active Substance: BEVACIZUMAB
     Indication: Neovascular age-related macular degeneration
     Route: 047
  6. AVASTIN [Suspect]
     Active Substance: BEVACIZUMAB
  7. AVASTIN [Suspect]
     Active Substance: BEVACIZUMAB
  8. ALBUTEROL SULFATE [Concomitant]
     Active Substance: ALBUTEROL SULFATE
     Dosage: HFA 90 MCG/ACTUATION AEROSOL INHALER ONE PUFF PRN
  9. CELECOXIB [Concomitant]
     Active Substance: CELECOXIB
  10. CETIRIZINE [Concomitant]
     Active Substance: CETIRIZINE HYDROCHLORIDE
  11. calcium carbonate- vitamin D3 [Concomitant]
     Dosage: 800 UNIT
  12. COLLAGEN [Concomitant]
     Active Substance: COLLAGEN
     Dosage: 1500 PLUS 500 MG-800 MCG-50 MG
  13. cyanocobalamin (vit B-12) [Concomitant]
     Dosage: 1,000 MCG SUBLINGUAL LOZENGE
  14. ELIQUIS [Concomitant]
     Active Substance: APIXABAN
     Dosage: TAKE ONE TABLET
  15. ESTRADIOL [Concomitant]
     Active Substance: ESTRADIOL
     Dosage: 0.0375 MG/24 HR SEMIWEEKLY TRANSDERMAL PATCH
  16. FLAXSEED [Concomitant]
     Active Substance: FLAX SEED
  17. FLUTICASONE [Concomitant]
     Active Substance: FLUTICASONE
     Dosage: 500 MCG-SALMETEROL 50 MCG/DOSE BLISTR POWDR FOR INHALATION
  18. FOLIC ACID [Concomitant]
     Active Substance: FOLIC ACID
     Dosage: 800 MCG
  19. FUROSEMIDE [Concomitant]
     Active Substance: FUROSEMIDE
  20. GARLIC [Concomitant]
     Active Substance: GARLIC
  21. TEA [Concomitant]
     Active Substance: TEA LEAF
  22. HYDROXYZINE PAMOATE [Concomitant]
     Active Substance: HYDROXYZINE PAMOATE
  23. IBUPROFEN [Concomitant]
     Active Substance: IBUPROFEN
  24. JARDIANCE [Concomitant]
     Active Substance: EMPAGLIFLOZIN
  25. LISINOPRIL [Concomitant]
     Active Substance: LISINOPRIL
  26. LYRICA [Concomitant]
     Active Substance: PREGABALIN
  27. LYSINE [Concomitant]
     Active Substance: LYSINE
  28. METOPROLOL SUCCINATE [Concomitant]
     Active Substance: METOPROLOL SUCCINATE
  29. MONTELUKAST [Concomitant]
     Active Substance: MONTELUKAST
  30. MUCINEX D [Concomitant]
     Active Substance: GUAIFENESIN\PSEUDOEPHEDRINE HYDROCHLORIDE
  31. OMEPRAZOLE [Concomitant]
     Active Substance: OMEPRAZOLE
  32. POTASSIUM CHLORIDE [Concomitant]
     Active Substance: POTASSIUM CHLORIDE
  33. VITAMIN D3 [Concomitant]
     Active Substance: CHOLECALCIFEROL
     Dosage: 2000
  34. VITAMIN E [Concomitant]
     Active Substance: .ALPHA.-TOCOPHEROL
     Dosage: 400 UNIT
  35. XIIDRA [Concomitant]
     Active Substance: LIFITEGRAST
     Dosage: 5% EYE DROPS
  36. AFLIBERCEPT [Concomitant]
     Active Substance: AFLIBERCEPT
  37. PREDNISOLONE [Concomitant]
     Active Substance: PREDNISOLONE
  38. PREDNISOLONE [Concomitant]
     Active Substance: PREDNISOLONE
     Route: 048
  39. MOXIFLOXACIN [Concomitant]
     Active Substance: MOXIFLOXACIN
  40. ATROPINE [Concomitant]
     Active Substance: ATROPINE

REACTIONS (5)
  - Retinal vasculitis [Recovering/Resolving]
  - Off label use [Unknown]
  - Blindness unilateral [Recovering/Resolving]
  - Vitreous floaters [Unknown]
  - Vitritis [Unknown]

NARRATIVE: CASE EVENT DATE: 20251022
